FAERS Safety Report 6804676-0 (Version None)
Quarter: 2010Q2

REPORT INFORMATION
  Report Type: 
  Country: None (occurrence: None)
  Receive Date: 20100628
  Receipt Date: 20070427
  Transmission Date: 20101027
  Serious: No
  Sender: FDA-Public Use
  Company Number: US-PFIZER INC-2007034789

PATIENT
  Sex: Male
  Weight: 77.272 kg

DRUGS (3)
  1. CADUET [Suspect]
     Indication: BLOOD CHOLESTEROL INCREASED
     Dosage: 5/10MG
     Dates: start: 20061201, end: 20070424
  2. CADUET [Suspect]
     Indication: HYPERTENSION
  3. NORVASC [Suspect]
     Indication: HYPERTENSION
     Dates: start: 20070401

REACTIONS (1)
  - MUSCLE SPASMS [None]
